FAERS Safety Report 19124945 (Version 2)
Quarter: 2021Q2

REPORT INFORMATION
  Report Type: Spontaneous
  Country: US (occurrence: US)
  Receive Date: 20210413
  Receipt Date: 20210419
  Transmission Date: 20210717
  Serious: No
  Sender: FDA-Public Use
  Company Number: US-JNJFOC-20210410728

PATIENT
  Age: 37 Year
  Sex: Male

DRUGS (13)
  1. TYLENOL [Suspect]
     Active Substance: ACETAMINOPHEN
     Indication: HEMIPARESIS
  2. MOTRIN [Suspect]
     Active Substance: IBUPROFEN
     Indication: FATIGUE
  3. MOTRIN [Suspect]
     Active Substance: IBUPROFEN
     Indication: HEADACHE
     Route: 065
     Dates: start: 20210308
  4. MOTRIN [Suspect]
     Active Substance: IBUPROFEN
     Indication: HEMIPARESIS
  5. TYLENOL [Suspect]
     Active Substance: ACETAMINOPHEN
     Indication: HEADACHE
     Route: 065
     Dates: start: 20210308
  6. MOTRIN [Suspect]
     Active Substance: IBUPROFEN
     Indication: PRURITUS
  7. MOTRIN [Suspect]
     Active Substance: IBUPROFEN
     Indication: DECREASED APPETITE
  8. TYLENOL [Suspect]
     Active Substance: ACETAMINOPHEN
     Indication: LIBIDO DECREASED
  9. MOTRIN [Suspect]
     Active Substance: IBUPROFEN
     Indication: LIBIDO DECREASED
  10. TYLENOL [Suspect]
     Active Substance: ACETAMINOPHEN
     Indication: PRURITUS
  11. TYLENOL [Suspect]
     Active Substance: ACETAMINOPHEN
     Indication: DECREASED APPETITE
  12. COVID?19 VACCINE NOS. [Concomitant]
     Active Substance: COVID-19 VACCINE NOS
     Indication: PRODUCT USED FOR UNKNOWN INDICATION
     Dosage: COVID?19 VACCINE AD26.COV2.S?SUSPENSION FOR INJECTION
     Route: 030
     Dates: start: 20210307
  13. TYLENOL [Suspect]
     Active Substance: ACETAMINOPHEN
     Indication: FATIGUE

REACTIONS (2)
  - Product use in unapproved indication [Unknown]
  - Drug ineffective [Unknown]

NARRATIVE: CASE EVENT DATE: 20210308
